FAERS Safety Report 18301121 (Version 2)
Quarter: 2023Q2

REPORT INFORMATION
  Report Type: Other
  Country: US (occurrence: None)
  Receive Date: 20200923
  Receipt Date: 20230411
  Transmission Date: 20230722
  Serious: Yes (Other)
  Sender: FDA-Public Use
  Company Number: US-ROCHE-2677740

PATIENT
  Age: 56 Year
  Sex: Female
  Weight: 68.100 kg

DRUGS (11)
  1. OCREVUS [Suspect]
     Active Substance: OCRELIZUMAB
     Indication: Multiple sclerosis
     Dosage: 13-AUG-2020, 25-FEB-2020, 11-FEB-2020
     Route: 042
     Dates: start: 201910
  2. OCREVUS [Suspect]
     Active Substance: OCRELIZUMAB
     Route: 042
  3. ACETAMINOPHEN [Concomitant]
     Active Substance: ACETAMINOPHEN
  4. CLONIDINE [Concomitant]
     Active Substance: CLONIDINE
  5. ENOXAPARIN [Concomitant]
     Active Substance: ENOXAPARIN
  6. KEPPRA [Concomitant]
     Active Substance: LEVETIRACETAM
  7. NEURONTIN [Concomitant]
     Active Substance: GABAPENTIN
  8. SENNA [Concomitant]
     Active Substance: SENNA LEAF\SENNOSIDES\SENNOSIDES A AND B
  9. PRISTIQ EXTENDED-RELEASE [Concomitant]
     Active Substance: DESVENLAFAXINE SUCCINATE
  10. AMANTADINE [Concomitant]
     Active Substance: AMANTADINE
  11. BACLOFEN [Concomitant]
     Active Substance: BACLOFEN

REACTIONS (2)
  - Urinary tract infection [Recovered/Resolved]
  - Encephalopathy [Unknown]

NARRATIVE: CASE EVENT DATE: 20200904
